FAERS Safety Report 10500999 (Version 1)
Quarter: 2014Q4

REPORT INFORMATION
  Report Type: Spontaneous
  Country: US (occurrence: None)
  Receive Date: 20141003
  Receipt Date: 20141003
  Transmission Date: 20150528
  Serious: Yes (Other)
  Sender: FDA-Public Use
  Company Number: None

PATIENT
  Age: 57 Year
  Sex: Female
  Weight: 83.92 kg

DRUGS (1)
  1. VICTOZA [Suspect]
     Active Substance: LIRAGLUTIDE
     Indication: TYPE 2 DIABETES MELLITUS
     Dosage: 1.2MG?ONCE DAILY?GIVEN INTO/UNDER THE SKIN
     Dates: start: 20140911, end: 20141002

REACTIONS (5)
  - Toothache [None]
  - Pain in jaw [None]
  - Irritability [None]
  - Anger [None]
  - Feeling abnormal [None]

NARRATIVE: CASE EVENT DATE: 20141002
